FAERS Safety Report 19621536 (Version 5)
Quarter: 2022Q1

REPORT INFORMATION
  Report Type: Spontaneous
  Country: JP (occurrence: JP)
  Receive Date: 20210728
  Receipt Date: 20220221
  Transmission Date: 20220424
  Serious: Yes (Hospitalization, Other)
  Sender: FDA-Public Use
  Company Number: NVSJ2021JP011066

PATIENT
  Age: 73 Year
  Sex: Female

DRUGS (4)
  1. TAFINLAR [Suspect]
     Active Substance: DABRAFENIB MESYLATE
     Indication: Malignant melanoma stage III
     Dosage: 300 MG
     Route: 048
     Dates: start: 202001, end: 202006
  2. TAFINLAR [Suspect]
     Active Substance: DABRAFENIB MESYLATE
     Dosage: UNK
     Route: 048
     Dates: start: 202105, end: 202108
  3. MEKINIST [Suspect]
     Active Substance: TRAMETINIB DIMETHYL SULFOXIDE
     Indication: Malignant melanoma stage III
     Dosage: 2 MG
     Route: 048
     Dates: start: 202001, end: 202006
  4. MEKINIST [Suspect]
     Active Substance: TRAMETINIB DIMETHYL SULFOXIDE
     Dosage: UNK
     Route: 048
     Dates: start: 202105, end: 202108

REACTIONS (5)
  - Cardiac failure [Recovered/Resolved]
  - Dyspnoea [Recovering/Resolving]
  - Cardiac dysfunction [Unknown]
  - Cardiac failure [Recovered/Resolved]
  - Echocardiogram abnormal [Unknown]

NARRATIVE: CASE EVENT DATE: 20200601
